FAERS Safety Report 12147204 (Version 2)
Quarter: 2016Q2

REPORT INFORMATION
  Report Type: Spontaneous
  Country: RO (occurrence: RO)
  Receive Date: 20160304
  Receipt Date: 20160609
  Transmission Date: 20160815
  Serious: Yes (Life-Threatening)
  Sender: FDA-Public Use
  Company Number: RO-TEVA-640487ISR

PATIENT
  Age: 12 Year
  Sex: Female

DRUGS (2)
  1. MEROPENEM. [Concomitant]
     Active Substance: MEROPENEM
     Indication: MENINGITIS PNEUMOCOCCAL
     Dosage: 2 GRAM DAILY;
     Route: 042
     Dates: start: 20151123, end: 20151206
  2. VANCOMICINA KABI 1000MG [Suspect]
     Active Substance: VANCOMYCIN
     Indication: MENINGITIS PNEUMOCOCCAL
     Dosage: 2 GRAM DAILY;
     Dates: start: 20151123, end: 20151123

REACTIONS (1)
  - Drug eruption [Recovered/Resolved]

NARRATIVE: CASE EVENT DATE: 20151123
